FAERS Safety Report 16746861 (Version 1)
Quarter: 2019Q3

REPORT INFORMATION
  Report Type: Spontaneous
  Country: US (occurrence: US)
  Receive Date: 20190827
  Receipt Date: 20190827
  Transmission Date: 20191005
  Serious: No
  Sender: FDA-Public Use
  Company Number: US-INCYTE CORPORATION-2019IN008499

PATIENT

DRUGS (1)
  1. JAKAFI [Suspect]
     Active Substance: RUXOLITINIB
     Indication: ESSENTIAL THROMBOCYTHAEMIA
     Dosage: 15 MILLIGRAM, BID
     Route: 048
     Dates: start: 20180602

REACTIONS (6)
  - Disease susceptibility [Unknown]
  - Pain in extremity [Unknown]
  - Off label use [Unknown]
  - Cardiovascular disorder [Unknown]
  - Therapeutic product effect decreased [Unknown]
  - Cardiac disorder [Unknown]
